FAERS Safety Report 4287333-7 (Version None)
Quarter: 2004Q1

REPORT INFORMATION
  Report Type: 
  Country: None (occurrence: None)
  Receive Date: 20040205
  Receipt Date: 20040116
  Transmission Date: 20041129
  Serious: Yes (Life-Threatening, Hospitalization)
  Sender: FDA-Public Use
  Company Number: A02200303316

PATIENT
  Age: 55 Year
  Sex: Female

DRUGS (3)
  1. ELOXATIN [Suspect]
     Indication: HEPATIC CANCER METASTATIC
     Dosage: 140 MG OTHER INTRAVENOUS NOS
     Route: 042
     Dates: start: 20031118, end: 20031118
  2. FLUOROURACIL [Concomitant]
  3. FOLINIC ACID [Concomitant]

REACTIONS (23)
  - AGITATION [None]
  - AGRANULOCYTOSIS [None]
  - ANOREXIA [None]
  - BRONCHIAL FISTULA [None]
  - C-REACTIVE PROTEIN INCREASED [None]
  - COMA [None]
  - COUGH [None]
  - DEPRESSED LEVEL OF CONSCIOUSNESS [None]
  - DIARRHOEA [None]
  - EPISTAXIS [None]
  - GINGIVAL BLEEDING [None]
  - HEART RATE INCREASED [None]
  - NAUSEA [None]
  - OEDEMA PERIPHERAL [None]
  - OXYGEN SATURATION DECREASED [None]
  - PALMAR-PLANTAR ERYTHRODYSAESTHESIA SYNDROME [None]
  - PANCYTOPENIA [None]
  - PARESIS [None]
  - PETECHIAE [None]
  - PYREXIA [None]
  - SOMNOLENCE [None]
  - STREPTOCOCCAL SEPSIS [None]
  - THROMBOCYTOPENIA [None]
